FAERS Safety Report 13264125 (Version 1)
Quarter: 2017Q1

REPORT INFORMATION
  Report Type: Spontaneous
  Country: US (occurrence: US)
  Receive Date: 20170222
  Receipt Date: 20170222
  Transmission Date: 20170428
  Serious: Yes (Life-Threatening, Hospitalization, Disabling, Other)
  Sender: FDA-Public Use
  Company Number: None

PATIENT
  Age: 42 Year
  Sex: Male
  Weight: 104.42 kg

DRUGS (1)
  1. GANDOLINIUM [Suspect]
     Active Substance: GADOLINIUM
     Indication: NUCLEAR MAGNETIC RESONANCE IMAGING
     Route: 042
     Dates: start: 20151004

REACTIONS (4)
  - Hypersensitivity [None]
  - Brain injury [None]
  - Cardiac arrest [None]
  - Coma [None]

NARRATIVE: CASE EVENT DATE: 20151004
